FAERS Safety Report 9710093 (Version 2)
Quarter: 2014Q2

REPORT INFORMATION
  Report Type: Report from Study
  Country: GB (occurrence: GB)
  Receive Date: 20131126
  Receipt Date: 20140522
  Transmission Date: 20141212
  Serious: Yes (Death)
  Sender: FDA-Public Use
  Company Number: GB-ROCHE-1309403

PATIENT
  Age: 82 Year
  Sex: Male

DRUGS (2)
  1. RANIBIZUMAB [Suspect]
     Indication: AGE-RELATED MACULAR DEGENERATION
     Route: 050
     Dates: start: 20110128
  2. RANIBIZUMAB [Suspect]
     Route: 050
     Dates: start: 20121211, end: 20121211

REACTIONS (3)
  - Bronchiectasis [Fatal]
  - Interstitial lung disease [Fatal]
  - Pneumonia [Fatal]
